FAERS Safety Report 8542678-7 (Version None)
Quarter: 2012Q3

REPORT INFORMATION
  Report Type: 
  Country: None (occurrence: None)
  Receive Date: 20120727
  Receipt Date: 20120711
  Transmission Date: 20120928
  Serious: No
  Sender: FDA-Public Use
  Company Number: US-009507513-1207USA004776

PATIENT

DRUGS (1)
  1. VYTORIN [Suspect]
     Dosage: UNK
     Dates: end: 20120401

REACTIONS (1)
  - ASTHENIA [None]
